FAERS Safety Report 16495439 (Version 6)
Quarter: 2020Q2

REPORT INFORMATION
  Report Type: Spontaneous
  Country: US (occurrence: US)
  Receive Date: 20190628
  Receipt Date: 20200507
  Transmission Date: 20200713
  Serious: No
  Sender: FDA-Public Use
  Company Number: US-PFIZER INC-2016469172

PATIENT
  Age: 72 Year
  Sex: Male

DRUGS (3)
  1. LYRICA [Suspect]
     Active Substance: PREGABALIN
     Indication: PAIN
     Dosage: 375 MG, DAILY [1 CAP EVERYAM, 2 CAPS AT NOON, AND 2 CAPS AT BEDTIME.]
     Route: 048
     Dates: start: 2011
  2. LYRICA [Suspect]
     Active Substance: PREGABALIN
     Indication: NEUROPATHY PERIPHERAL
     Dosage: 375 MG, DAILY [1 CAP EVERY AM, 2 CAPS AT NOON, AND 2 CAPS AT BEDTIME]
     Route: 048
     Dates: start: 20170922
  3. LYRICA [Suspect]
     Active Substance: PREGABALIN
     Indication: NERVE INJURY
     Dosage: 75 MG, 4X/DAY
     Route: 048
     Dates: start: 20160930

REACTIONS (6)
  - Fall [Unknown]
  - Malaise [Unknown]
  - Therapeutic product effect incomplete [Unknown]
  - Hypoacusis [Not Recovered/Not Resolved]
  - Injury [Unknown]
  - Intentional product use issue [Unknown]
